FAERS Safety Report 9816686 (Version 1)
Quarter: 2014Q1

REPORT INFORMATION
  Report Type: Spontaneous
  Country: US (occurrence: US)
  Receive Date: 20140114
  Receipt Date: 20140114
  Transmission Date: 20141002
  Serious: Yes (Hospitalization)
  Sender: FDA-Public Use
  Company Number: US-B.I. PHARMACEUTICALS,INC./RIDGEFIELD-2014-BI-01420BP

PATIENT
  Sex: Male
  Weight: 68 kg

DRUGS (7)
  1. COMBIVENT [Suspect]
     Indication: EMPHYSEMA
     Dosage: STRENGTH: 18 MCG / 103 MCG; DAILY DOSE: 72MCG/412 MCG
     Route: 055
     Dates: end: 201401
  2. SPIRIVA [Suspect]
     Indication: EMPHYSEMA
     Dosage: 18 MCG
     Route: 055
     Dates: start: 2008
  3. PRILOSEC [Concomitant]
     Indication: GASTROOESOPHAGEAL REFLUX DISEASE
     Route: 048
  4. NEBULIZER ALBUTEROL [Concomitant]
     Indication: EMPHYSEMA
     Dosage: (INHALATION AEROSOL)
     Route: 055
  5. FISH OIL [Concomitant]
     Route: 048
  6. MULTIVITAMIN [Concomitant]
     Route: 048
  7. BENECAR [Concomitant]
     Indication: HYPERTENSION
     Dosage: 5 MG
     Route: 048

REACTIONS (3)
  - Emphysema [Recovered/Resolved]
  - Upper respiratory tract infection [Recovered/Resolved]
  - Oxygen supplementation [Not Recovered/Not Resolved]
